FAERS Safety Report 8387642-6 (Version None)
Quarter: 2012Q2

REPORT INFORMATION
  Report Type: 
  Country: None (occurrence: None)
  Receive Date: 20120525
  Receipt Date: 20120524
  Transmission Date: 20120825
  Serious: Yes (Hospitalization, Other)
  Sender: FDA-Public Use
  Company Number: PHHY2012DE036862

PATIENT
  Sex: Male
  Weight: 111 kg

DRUGS (18)
  1. BETA BLOCKING AGENTS [Concomitant]
     Dates: start: 20110308
  2. TORSEMIDE [Concomitant]
     Indication: HYPERTENSION
     Dosage: 10 MG, BID
     Route: 048
  3. ANGIOTENSIN II ANTAGONISTS [Concomitant]
  4. IRBESARTAN [Concomitant]
     Indication: HYPERTENSION
     Dosage: 150 MG, BID
     Route: 048
  5. MOXOBETA [Concomitant]
     Dosage: 0.2 MG/DAY
     Route: 048
     Dates: start: 20100722, end: 20120301
  6. MOXOBETA [Concomitant]
     Indication: HYPERTENSION
     Route: 048
  7. APIDRA [Concomitant]
     Indication: DIABETES MELLITUS
     Dosage: 25 IU - 12 IU - 25 IU
     Route: 058
  8. LEVEMIR [Concomitant]
     Indication: DIABETES MELLITUS
     Dosage: 18 IU/DAY
     Route: 058
  9. ALLOPURINOL [Concomitant]
     Indication: HYPERURICAEMIA
     Dosage: 150 MG/DAY
     Route: 048
  10. DIURETICS [Concomitant]
  11. ORAL ANTIDIABETICS [Concomitant]
     Indication: DIABETES MELLITUS
  12. ORAL ANTICOAGULANTS [Concomitant]
  13. INSPRA [Concomitant]
     Indication: HYPERTENSION
     Dosage: 25 MG
     Route: 048
  14. RASILEZ [Suspect]
     Indication: HYPERTENSION
     Dosage: 300 MG/DAY
     Route: 048
     Dates: start: 20090228, end: 20120124
  15. INSULIN [Concomitant]
     Indication: DIABETES MELLITUS
  16. KERLONE [Concomitant]
     Indication: HYPERTENSION
     Dosage: 0.5 MG
  17. FALITHROM [Concomitant]
     Indication: ATRIAL FIBRILLATION
     Route: 048
  18. LANTUS [Concomitant]
     Indication: DIABETES MELLITUS
     Route: 058
     Dates: start: 20110811

REACTIONS (2)
  - CARDIAC FAILURE [None]
  - BLOOD GLUCOSE INCREASED [None]
